FAERS Safety Report 24437338 (Version 1)
Quarter: 2024Q4

REPORT INFORMATION
  Report Type: Spontaneous
  Country: US (occurrence: None)
  Receive Date: 20241011
  Receipt Date: 20241011
  Transmission Date: 20250114
  Serious: Yes (Hospitalization)
  Sender: Public
  Company Number: None

PATIENT
  Age: 74 Year
  Sex: Male

DRUGS (1)
  1. RIVAROXABAN [Suspect]
     Active Substance: RIVAROXABAN
     Indication: Embolism venous

REACTIONS (3)
  - Gastrointestinal haemorrhage [None]
  - Post procedural haemorrhage [None]
  - Polypectomy [None]

NARRATIVE: CASE EVENT DATE: 20240502
